FAERS Safety Report 15001558 (Version 1)
Quarter: 2018Q2

REPORT INFORMATION
  Report Type: Spontaneous
  Country: GB (occurrence: GB)
  Receive Date: 20180612
  Receipt Date: 20180612
  Transmission Date: 20180711
  Serious: Yes (Disabling, Other)
  Sender: FDA-Public Use
  Company Number: GB-TEVA-646935ACC

PATIENT
  Age: 70 Year
  Sex: Female

DRUGS (4)
  1. LORVACS XL [Suspect]
     Active Substance: INDAPAMIDE
     Indication: HYPERTENSION
     Dates: start: 20150330
  2. CARDIDE SR PROLONGED RELEASE [Suspect]
     Active Substance: INDAPAMIDE
     Indication: HYPERTENSION
     Dosage: 9 ONLY TAKEN.
     Dates: end: 20150512
  3. BENDROFLUMETHIAZIDE [Concomitant]
     Active Substance: BENDROFLUMETHIAZIDE
     Indication: HYPERTENSION
     Dates: start: 20150303, end: 20150330
  4. LOSARTAN. [Concomitant]
     Active Substance: LOSARTAN
     Indication: HYPERTENSION
     Dates: start: 20150203, end: 20150209

REACTIONS (5)
  - Fibromyalgia [Not Recovered/Not Resolved]
  - Peripheral swelling [Unknown]
  - Lethargy [Unknown]
  - Muscular weakness [Not Recovered/Not Resolved]
  - Pain in extremity [Not Recovered/Not Resolved]
